FAERS Safety Report 10121074 (Version 1)
Quarter: 2014Q2

REPORT INFORMATION
  Report Type: Spontaneous
  Country: FR (occurrence: FR)
  Receive Date: 20140425
  Receipt Date: 20140425
  Transmission Date: 20141212
  Serious: Yes (Hospitalization)
  Sender: FDA-Public Use
  Company Number: FR-JNJFOC-20140416814

PATIENT
  Age: 63 Year
  Sex: Female

DRUGS (4)
  1. TOPALGIC [Suspect]
     Indication: PAIN
     Route: 042
     Dates: start: 20140327, end: 20140329
  2. AUGMENTIN [Suspect]
     Indication: SEPTIC SHOCK
     Route: 065
     Dates: start: 20140323
  3. GENTAMICIN [Suspect]
     Indication: SEPTIC SHOCK
     Route: 065
     Dates: start: 20140323, end: 20140329
  4. AMOXICILLIN [Suspect]
     Indication: SEPTIC SHOCK
     Route: 065
     Dates: start: 20140323

REACTIONS (1)
  - Skin exfoliation [Unknown]
